FAERS Safety Report 17895329 (Version 5)
Quarter: 2020Q4

REPORT INFORMATION
  Report Type: Spontaneous
  Country: US (occurrence: US)
  Receive Date: 20200615
  Receipt Date: 20201013
  Transmission Date: 20210113
  Serious: No
  Sender: FDA-Public Use
  Company Number: US-GLAXOSMITHKLINE-US2020AMR098938

PATIENT
  Age: 57 Year
  Sex: Female

DRUGS (2)
  1. ZEJULA [Suspect]
     Active Substance: NIRAPARIB
     Indication: OVARIAN CANCER
     Dosage: 300 MG, QD
     Dates: start: 20200510
  2. COMPAZINE [Concomitant]
     Active Substance: PROCHLORPERAZINE MALEATE
     Indication: NAUSEA
     Dosage: 1 DF, QD9AT NIGHT)

REACTIONS (14)
  - Constipation [Recovering/Resolving]
  - Feeling hot [Unknown]
  - Temperature intolerance [Unknown]
  - Anaemia [Unknown]
  - Alopecia [Unknown]
  - Feeling abnormal [Recovering/Resolving]
  - Heart rate increased [Unknown]
  - Diarrhoea [Unknown]
  - Asthenia [Unknown]
  - Hypoaesthesia [Unknown]
  - Red blood cell count decreased [Unknown]
  - Loss of personal independence in daily activities [Unknown]
  - Nausea [Recovering/Resolving]
  - Fatigue [Unknown]

NARRATIVE: CASE EVENT DATE: 202007
